FAERS Safety Report 9379025 (Version 1)
Quarter: 2013Q3

REPORT INFORMATION
  Report Type: Spontaneous
  Country: FR (occurrence: FR)
  Receive Date: 20130702
  Receipt Date: 20130702
  Transmission Date: 20140515
  Serious: Yes (Hospitalization)
  Sender: FDA-Public Use
  Company Number: FR-BRISTOL-MYERS SQUIBB COMPANY-19059021

PATIENT
  Age: 76 Year
  Sex: Male

DRUGS (2)
  1. COUMADINE [Suspect]
     Indication: ATRIAL FIBRILLATION
  2. LOVENOX [Suspect]
     Indication: ATRIAL FIBRILLATION
     Dosage: 1DF:6000 IU/0.6ML
     Route: 058

REACTIONS (5)
  - Shock haemorrhagic [Recovered/Resolved]
  - Haematoma [Recovered/Resolved]
  - International normalised ratio increased [Recovered/Resolved]
  - Anaemia [Recovered/Resolved]
  - Fall [Unknown]
